FAERS Safety Report 16934657 (Version 1)
Quarter: 2019Q4

REPORT INFORMATION
  Report Type: Spontaneous
  Country: US (occurrence: US)
  Receive Date: 20191018
  Receipt Date: 20191018
  Transmission Date: 20200122
  Serious: Yes (Hospitalization, Other)
  Sender: FDA-Public Use
  Company Number: US-ACTELION-A-CH2019-196867

PATIENT
  Age: 58 Year
  Sex: Male

DRUGS (2)
  1. SILDENAFIL. [Concomitant]
     Active Substance: SILDENAFIL
     Indication: PORTOPULMONARY HYPERTENSION
     Route: 048
  2. UPTRAVI [Suspect]
     Active Substance: SELEXIPAG
     Indication: PORTOPULMONARY HYPERTENSION
     Route: 048

REACTIONS (24)
  - Staphylococcal bacteraemia [Not Recovered/Not Resolved]
  - Arteriovenous fistula [Not Recovered/Not Resolved]
  - Electrolyte imbalance [Unknown]
  - Oedema [Unknown]
  - Respiratory failure [Unknown]
  - Acute kidney injury [Unknown]
  - Shock [Unknown]
  - Cardiac valve vegetation [Not Recovered/Not Resolved]
  - Blood culture positive [Not Recovered/Not Resolved]
  - Staphylococcus test positive [Not Recovered/Not Resolved]
  - Right ventricular heave [Not Recovered/Not Resolved]
  - Hypotension [Unknown]
  - Aortic valve incompetence [Not Recovered/Not Resolved]
  - Cardiac murmur [Not Recovered/Not Resolved]
  - Blood creatinine increased [Unknown]
  - Troponin increased [Unknown]
  - Bradycardia [Recovered/Resolved]
  - Rales [Not Recovered/Not Resolved]
  - Pulse pressure increased [Unknown]
  - Aortic dilatation [Not Recovered/Not Resolved]
  - Atrial tachycardia [Recovered/Resolved]
  - Atrioventricular block complete [Unknown]
  - Staphylococcal sepsis [Unknown]
  - Atrial fibrillation [Unknown]
